FAERS Safety Report 11265388 (Version 1)
Quarter: 2015Q3

REPORT INFORMATION
  Report Type: Spontaneous
  Country: US (occurrence: US)
  Receive Date: 20150713
  Receipt Date: 20150713
  Transmission Date: 20151125
  Serious: No
  Sender: FDA-Public Use
  Company Number: US-BIOGENIDEC-2015BI092716

PATIENT
  Sex: Female

DRUGS (1)
  1. TECFIDERA [Suspect]
     Active Substance: DIMETHYL FUMARATE
     Indication: MULTIPLE SCLEROSIS
     Dates: start: 2013

REACTIONS (11)
  - Nausea [Unknown]
  - Urinary tract infection [Unknown]
  - Feeling abnormal [Unknown]
  - Chest discomfort [Unknown]
  - Drug interaction [Unknown]
  - Dizziness [Unknown]
  - Abdominal distension [Unknown]
  - Cold sweat [Unknown]
  - Abdominal discomfort [Unknown]
  - Vision blurred [Unknown]
  - Drug dose omission [Recovered/Resolved]
